FAERS Safety Report 4343406-1 (Version None)
Quarter: 2004Q1

REPORT INFORMATION
  Report Type: 
  Country: None (occurrence: None)
  Receive Date: 20040325
  Receipt Date: 20031120
  Transmission Date: 20041129
  Serious: No
  Sender: FDA-Public Use
  Company Number: USA031153097

PATIENT
  Age: 62 Year
  Sex: Female
  Weight: 58 kg

DRUGS (7)
  1. FORTEO [Suspect]
     Indication: OSTEOPOROSIS
     Dosage: 20 UG/DAY
     Dates: start: 20030901
  2. AVALIDE [Concomitant]
  3. MULTI-VITAMINS [Concomitant]
  4. VITAMIN D [Concomitant]
  5. VITAMIN E [Concomitant]
  6. LEVSIN (HYOSCYAMINE SULFATE) [Concomitant]
  7. PRILOSEC [Concomitant]

REACTIONS (2)
  - CHEST WALL PAIN [None]
  - NAUSEA [None]
